FAERS Safety Report 14689678 (Version 1)
Quarter: 2018Q1

REPORT INFORMATION
  Report Type: Spontaneous
  Country: US (occurrence: US)
  Receive Date: 20180327
  Receipt Date: 20180327
  Transmission Date: 20180509
  Serious: No
  Sender: FDA-Public Use
  Company Number: None

PATIENT
  Age: 55 Year
  Sex: Female

DRUGS (1)
  1. ESZOPICLONE. [Suspect]
     Active Substance: ESZOPICLONE
     Route: 048
     Dates: start: 20180129, end: 20180326

REACTIONS (3)
  - Drug effect incomplete [None]
  - Poor quality sleep [None]
  - Product substitution issue [None]

NARRATIVE: CASE EVENT DATE: 20180326
